FAERS Safety Report 16088040 (Version 1)
Quarter: 2019Q1

REPORT INFORMATION
  Report Type: Spontaneous
  Country: BR (occurrence: BR)
  Receive Date: 20190319
  Receipt Date: 20190319
  Transmission Date: 20190418
  Serious: Yes (Other)
  Sender: FDA-Public Use
  Company Number: BR-BAYER-2019-048584

PATIENT
  Age: 20 Day
  Sex: Male

DRUGS (1)
  1. MIRENA [Suspect]
     Active Substance: LEVONORGESTREL
     Dosage: UNK
     Dates: start: 201406, end: 201511

REACTIONS (2)
  - Maternal exposure during pregnancy [None]
  - Congenital megacolon [None]

NARRATIVE: CASE EVENT DATE: 201508
